FAERS Safety Report 9807541 (Version 1)
Quarter: 2014Q1

REPORT INFORMATION
  Report Type: Spontaneous
  Country: US (occurrence: US)
  Receive Date: 20140110
  Receipt Date: 20140110
  Transmission Date: 20141002
  Serious: No
  Sender: FDA-Public Use
  Company Number: US-SANOFI-AVENTIS-2013SA003709

PATIENT
  Sex: Male

DRUGS (2)
  1. PLAVIX [Suspect]
  2. METFORMIN [Suspect]

REACTIONS (4)
  - Blood glucose increased [Unknown]
  - Nausea [Unknown]
  - Malaise [Unknown]
  - Gastrointestinal disorder [Unknown]
